FAERS Safety Report 7821997-3 (Version None)
Quarter: 2011Q4

REPORT INFORMATION
  Report Type: 
  Country: None (occurrence: None)
  Receive Date: 20111018
  Receipt Date: 20111011
  Transmission Date: 20120403
  Serious: Yes (Death)
  Sender: FDA-Public Use
  Company Number: US-GENZYME-CLOF-1001713

PATIENT
  Sex: Male

DRUGS (6)
  1. CLOLAR [Suspect]
     Indication: ACUTE LEUKAEMIA
     Dosage: UNK
     Route: 065
  2. THIOTEPA [Suspect]
     Indication: STEM CELL TRANSPLANT
  3. TACROLIMUS [Concomitant]
     Indication: PROPHYLAXIS AGAINST GRAFT VERSUS HOST DISEASE
     Dosage: UNK
     Route: 065
  4. MELPHALAN HYDROCHLORIDE [Suspect]
     Indication: ACUTE LEUKAEMIA
     Dosage: 70 MG/M2, QD
     Route: 065
  5. THIOTEPA [Suspect]
     Indication: ACUTE LEUKAEMIA
     Dosage: 10 MG/KG, QD
     Route: 065
  6. MELPHALAN HYDROCHLORIDE [Suspect]
     Indication: STEM CELL TRANSPLANT

REACTIONS (1)
  - ACUTE LEUKAEMIA [None]
